FAERS Safety Report 5069068-6 (Version None)
Quarter: 2006Q3

REPORT INFORMATION
  Report Type: 
  Country: None (occurrence: None)
  Receive Date: 20060731
  Receipt Date: 20060720
  Transmission Date: 20061208
  Serious: Yes (Hospitalization)
  Sender: FDA-Public Use
  Company Number: 2006090073

PATIENT
  Age: 31 Year
  Sex: Male

DRUGS (1)
  1. GLIPIZIDE [Suspect]
     Indication: DIABETES MELLITUS NON-INSULIN-DEPENDENT
     Dosage: 10 MG (1 IN 1 D)

REACTIONS (4)
  - CONJUNCTIVITIS [None]
  - ERYTHEMA MULTIFORME [None]
  - SKIN HAEMORRHAGE [None]
  - STEVENS-JOHNSON SYNDROME [None]
